FAERS Safety Report 12093378 (Version 1)
Quarter: 2016Q1

REPORT INFORMATION
  Report Type: Spontaneous
  Country: US (occurrence: None)
  Receive Date: 20160218
  Receipt Date: 20160218
  Transmission Date: 20160526
  Serious: No
  Sender: FDA-Public Use
  Company Number: None

PATIENT
  Age: 61 Year
  Sex: Male

DRUGS (1)
  1. SUTENT [Suspect]
     Active Substance: SUNITINIB MALATE
     Route: 048
     Dates: start: 20160111

REACTIONS (4)
  - Fatigue [None]
  - Depression [None]
  - Glossodynia [None]
  - Blood pressure diastolic decreased [None]

NARRATIVE: CASE EVENT DATE: 20160201
